FAERS Safety Report 8935421 (Version 1)
Quarter: 2012Q4

REPORT INFORMATION
  Report Type: Spontaneous
  Country: US (occurrence: None)
  Receive Date: 20121119
  Receipt Date: 20121119
  Transmission Date: 20130627
  Serious: Yes (Other)
  Sender: FDA-Public Use
  Company Number: AMIT20120023

PATIENT
  Age: 28 Year
  Sex: Female

DRUGS (4)
  1. AMITRIPTYLINE HYDROCHLORIDE [Suspect]
     Indication: PRODUCT USED FOR UNKNOWN INDICATION
     Route: 048
  2. DIAZEPAM [Suspect]
     Route: 048
  3. OXYCODONE AND ACETAMINOPHEN [Suspect]
  4. NAPROXEN [Suspect]
     Route: 048

REACTIONS (7)
  - Vomiting [None]
  - Dehydration [None]
  - Weight decreased [None]
  - Anxiety [None]
  - Back pain [None]
  - Pregnancy [None]
  - Maternal exposure before pregnancy [None]
